FAERS Safety Report 20848161 (Version 2)
Quarter: 2022Q4

REPORT INFORMATION
  Report Type: Report from Study
  Country: US (occurrence: US)
  Receive Date: 20220519
  Receipt Date: 20221021
  Transmission Date: 20230112
  Serious: Yes (Other)
  Sender: FDA-Public Use
  Company Number: US-ABBVIE-22K-163-4399207-00

PATIENT
  Age: 35 Year
  Sex: Female

DRUGS (5)
  1. HUMIRA [Suspect]
     Active Substance: ADALIMUMAB
     Indication: Rheumatoid arthritis
     Dosage: CITRATE FREE
     Route: 058
     Dates: start: 20220321
  2. Turmeric pill [Concomitant]
     Indication: Product used for unknown indication
     Dosage: 3 OR 5 YEARS AGO
  3. Folic acid pill [Concomitant]
     Indication: Epilepsy
     Dosage: 2 PILLS TWICE A DAY, MORE THAN 2 YEARS AGO
  4. Potassium pill [Concomitant]
     Indication: Product used for unknown indication
     Dosage: MORE THAN 2 YEARS AGO
  5. IRON [Concomitant]
     Active Substance: IRON
     Indication: Product used for unknown indication

REACTIONS (2)
  - Seizure [Recovered/Resolved]
  - Petit mal epilepsy [Unknown]

NARRATIVE: CASE EVENT DATE: 20220512
